FAERS Safety Report 4635574-9 (Version None)
Quarter: 2005Q2

REPORT INFORMATION
  Report Type: 
  Country: None (occurrence: None)
  Receive Date: 20050413
  Receipt Date: 20050401
  Transmission Date: 20051028
  Serious: Yes (Hospitalization, Other)
  Sender: FDA-Public Use
  Company Number: KII-2005-0015777

PATIENT
  Age: 45 Year
  Sex: Female

DRUGS (4)
  1. MORPHINE SULFATE [Suspect]
  2. BENZODIAZEPINE DERIVATIVES [Suspect]
  3. SALICYLIC ACID PREPARATIONS [Suspect]
  4. BARBITURATES [Suspect]

REACTIONS (20)
  - AGGRESSION [None]
  - ASPARTATE AMINOTRANSFERASE INCREASED [None]
  - BLOOD CREATINE INCREASED [None]
  - BLOOD CREATINE PHOSPHOKINASE INCREASED [None]
  - BLOOD GASES ABNORMAL [None]
  - BLOOD GLUCOSE DECREASED [None]
  - BLOOD PH DECREASED [None]
  - BLOOD PRESSURE DECREASED [None]
  - BREATH SOUNDS DECREASED [None]
  - COMA [None]
  - HYPOTHERMIA [None]
  - LUNG INFILTRATION [None]
  - PCO2 INCREASED [None]
  - PNEUMONIA ASPIRATION [None]
  - PO2 DECREASED [None]
  - PROTHROMBIN TIME PROLONGED [None]
  - SECRETION DISCHARGE [None]
  - SINUS TACHYCARDIA [None]
  - VOMITING [None]
  - WHEEZING [None]
